FAERS Safety Report 7632683-7 (Version None)
Quarter: 2011Q3

REPORT INFORMATION
  Report Type: 
  Country: None (occurrence: None)
  Receive Date: 20110725
  Receipt Date: 20101129
  Transmission Date: 20111222
  Serious: No
  Sender: FDA-Public Use
  Company Number: US-BRISTOL-MYERS SQUIBB COMPANY-15411226

PATIENT
  Age: 83 Year
  Sex: Male
  Weight: 68 kg

DRUGS (1)
  1. COUMADIN [Suspect]
     Dosage: 1 DF: 5MG MONDAY AND FRIDAY, AND THE REST OF THE WEEK 2.5MG.

REACTIONS (1)
  - INTERNATIONAL NORMALISED RATIO INCREASED [None]
